FAERS Safety Report 13084572 (Version 1)
Quarter: 2017Q1

REPORT INFORMATION
  Report Type: Spontaneous
  Country: JP (occurrence: JP)
  Receive Date: 20170104
  Receipt Date: 20170104
  Transmission Date: 20170428
  Serious: Yes (Death)
  Sender: FDA-Public Use
  Company Number: JP-TEVA-724295ISR

PATIENT
  Age: 79 Year
  Sex: Male
  Weight: 49 kg

DRUGS (12)
  1. STREPTOMYCIN SULFATE. [Concomitant]
     Active Substance: STREPTOMYCIN SULFATE
     Indication: PULMONARY TUBERCULOSIS
     Dosage: 750 MILLIGRAM DAILY;
     Route: 042
     Dates: end: 20150511
  2. FENTOS [Concomitant]
     Active Substance: FENTANYL
     Indication: CANCER PAIN
     Dosage: 2 MILLIGRAM DAILY;
     Route: 062
     Dates: end: 20150513
  3. FENTANYL. [Suspect]
     Active Substance: FENTANYL
     Dosage: 100 MICROGRAM DAILY;
     Route: 002
     Dates: start: 20150427, end: 20150512
  4. SANDOSTATIN [Concomitant]
     Active Substance: OCTREOTIDE ACETATE
     Indication: MALIGNANT ASCITES
     Dosage: 300 MICROGRAM DAILY;
     Route: 058
     Dates: start: 20150428, end: 20150512
  5. SULPYRINE HYDRATE [Concomitant]
     Indication: CANCER PAIN
     Dosage: 500 MILLIGRAM DAILY;
     Route: 030
     Dates: end: 20150411
  6. ZANTAC [Concomitant]
     Active Substance: RANITIDINE HYDROCHLORIDE
     Dosage: 50 MILLIGRAM DAILY;
     Route: 042
     Dates: end: 20150411
  7. PREDONINE [Concomitant]
     Active Substance: PREDNISOLONE
     Dosage: 20 MILLIGRAM DAILY;
     Route: 042
     Dates: start: 20150414, end: 20150512
  8. FENTANYL. [Suspect]
     Active Substance: FENTANYL
     Dosage: 400 MICROGRAM DAILY;
     Route: 002
     Dates: start: 20150420, end: 20150426
  9. SOSEGON [Concomitant]
     Active Substance: PENTAZOCINE
     Indication: BREAKTHROUGH PAIN
     Route: 030
  10. SULPYRINE HYDRATE [Concomitant]
     Dosage: 125 MILLIGRAM DAILY;
     Route: 030
     Dates: start: 20150424, end: 20150511
  11. FENTANYL. [Suspect]
     Active Substance: FENTANYL
     Indication: BREAKTHROUGH PAIN
     Dosage: 200 MICROGRAM DAILY;
     Route: 002
     Dates: start: 20150409, end: 20150418
  12. FENTANYL. [Suspect]
     Active Substance: FENTANYL
     Dosage: 150 MICROGRAM DAILY;
     Route: 002
     Dates: start: 20150419, end: 20150419

REACTIONS (1)
  - Colorectal cancer [Fatal]

NARRATIVE: CASE EVENT DATE: 20150513
